FAERS Safety Report 4333082-6 (Version None)
Quarter: 2004Q1

REPORT INFORMATION
  Report Type: 
  Country: None (occurrence: None)
  Receive Date: 20040330
  Receipt Date: 20040317
  Transmission Date: 20041129
  Serious: Yes (Hospitalization)
  Sender: FDA-Public Use
  Company Number: BE-JNJFOC-20040301817

PATIENT
  Age: 41 Year
  Sex: Female

DRUGS (1)
  1. PROPULSID [Suspect]
     Indication: IMPAIRED GASTRIC EMPTYING
     Dosage: 10 MG, 2 IN 1 DAY
     Dates: start: 20030122

REACTIONS (3)
  - GASTROENTERITIS EOSINOPHILIC [None]
  - GASTROINTESTINAL DISORDER [None]
  - GASTROINTESTINAL OBSTRUCTION [None]
